FAERS Safety Report 15462112 (Version 1)
Quarter: 2018Q4

REPORT INFORMATION
  Report Type: Spontaneous
  Country: US (occurrence: US)
  Receive Date: 20181001
  Receipt Date: 20181001
  Transmission Date: 20190204
  Serious: No
  Sender: FDA-Public Use
  Company Number: None

PATIENT
  Sex: Male

DRUGS (9)
  1. RENTONE [Concomitant]
  2. DMPS [Suspect]
     Active Substance: 2,3-DIMERCAPTO-1-PROPANESULFONIC ACID
     Indication: METAL POISONING
     Route: 042
     Dates: start: 20180126, end: 20180301
  3. CELLCEPT [Concomitant]
     Active Substance: MYCOPHENOLATE MOFETIL\MYCOPHENOLATE MOFETIL HYDROCHLORIDE
  4. LOW DOSE NALTREXONE [Concomitant]
     Active Substance: NALTREXONE
  5. WELLBUTRIN [Concomitant]
     Active Substance: BUPROPION HYDROCHLORIDE
  6. SERRAPEPTASE [Concomitant]
     Active Substance: SERRAPEPTASE
  7. VITAMIN D [Concomitant]
     Active Substance: CHOLECALCIFEROL
  8. HPA ADAPT [Concomitant]
  9. FINASTERIDE. [Concomitant]
     Active Substance: FINASTERIDE

REACTIONS (1)
  - Rash [None]

NARRATIVE: CASE EVENT DATE: 20180201
